FAERS Safety Report 8417082-2 (Version None)
Quarter: 2012Q2

REPORT INFORMATION
  Report Type: 
  Country: None (occurrence: None)
  Receive Date: 20120606
  Receipt Date: 20120601
  Transmission Date: 20120825
  Serious: Yes (Life-Threatening, Hospitalization)
  Sender: FDA-Public Use
  Company Number: US-ELI_LILLY_AND_COMPANY-US201206000886

PATIENT
  Sex: Female

DRUGS (2)
  1. GLUCAGON [Suspect]
     Indication: HYPOGLYCAEMIA
     Dosage: UNK, UNKNOWN
     Dates: start: 20120415, end: 20120416
  2. INSULIN [Concomitant]
     Dosage: UNK, UNKNOWN

REACTIONS (8)
  - LOSS OF CONSCIOUSNESS [None]
  - BLOOD GLUCOSE DECREASED [None]
  - HYPOGLYCAEMIC COMA [None]
  - DEPRESSED LEVEL OF CONSCIOUSNESS [None]
  - DEVICE RELATED INFECTION [None]
  - BLOOD GLUCOSE INCREASED [None]
  - RESPIRATORY ARREST [None]
  - DRUG INEFFECTIVE [None]
